FAERS Safety Report 21217163 (Version 2)
Quarter: 2022Q4

REPORT INFORMATION
  Report Type: Spontaneous
  Country: US (occurrence: US)
  Receive Date: 20220816
  Receipt Date: 20221026
  Transmission Date: 20230112
  Serious: No
  Sender: FDA-Public Use
  Company Number: US-PFIZER INC-202201030439

PATIENT
  Age: 62 Year
  Sex: Female

DRUGS (1)
  1. NIVESTYM [Suspect]
     Active Substance: FILGRASTIM-AAFI
     Dosage: 0.5 ML, DAILY (.05 ML EVERY DAY)

REACTIONS (3)
  - Device use error [Unknown]
  - Product label confusion [Unknown]
  - Device difficult to use [Unknown]
